FAERS Safety Report 15736049 (Version 1)
Quarter: 2018Q4

REPORT INFORMATION
  Report Type: Spontaneous
  Country: NL (occurrence: NL)
  Receive Date: 20181218
  Receipt Date: 20181218
  Transmission Date: 20190205
  Serious: Yes (Hospitalization)
  Sender: FDA-Public Use
  Company Number: NL-TEVA-2018-NL-987387

PATIENT
  Age: 79 Year
  Sex: Female
  Weight: 100 kg

DRUGS (2)
  1. EFEXOR [Concomitant]
     Active Substance: VENLAFAXINE HYDROCHLORIDE
     Route: 065
  2. OLANZAPINE. [Suspect]
     Active Substance: OLANZAPINE
     Indication: PERSONALITY DISORDER
     Dosage: 1X
     Route: 065
     Dates: start: 20170515

REACTIONS (1)
  - Delusion [Unknown]

NARRATIVE: CASE EVENT DATE: 20170515
